FAERS Safety Report 6646316-X (Version None)
Quarter: 2010Q1

REPORT INFORMATION
  Report Type: 
  Country: None (occurrence: None)
  Receive Date: 20100323
  Receipt Date: 20100309
  Transmission Date: 20100710
  Serious: Yes (Death, Other)
  Sender: FDA-Public Use
  Company Number: JP-BAYER-201010820BYL

PATIENT
  Age: 16 Year
  Sex: Female

DRUGS (4)
  1. FLUDARA [Suspect]
     Indication: BONE MARROW TRANSPLANT
     Route: 065
  2. L-PAM [Concomitant]
     Indication: BONE MARROW TRANSPLANT
     Route: 065
  3. TACROLIMUS HYDRATE [Concomitant]
     Indication: PROPHYLAXIS AGAINST GRAFT VERSUS HOST DISEASE
  4. METHOTREXATE [Concomitant]
     Indication: PROPHYLAXIS AGAINST GRAFT VERSUS HOST DISEASE

REACTIONS (9)
  - ACUTE GRAFT VERSUS HOST DISEASE [None]
  - C-REACTIVE PROTEIN INCREASED [None]
  - CYTOMEGALOVIRUS INFECTION [None]
  - ENGRAFT FAILURE [None]
  - FEBRILE NEUTROPENIA [None]
  - HEPATIC ENCEPHALOPATHY [None]
  - HEPATIC FAILURE [None]
  - HISTIOCYTOSIS HAEMATOPHAGIC [None]
  - PLATELET COUNT DECREASED [None]
